FAERS Safety Report 7053633-0 (Version None)
Quarter: 2010Q4

REPORT INFORMATION
  Report Type: 
  Country: None (occurrence: None)
  Receive Date: 20101020
  Receipt Date: 20101014
  Transmission Date: 20110411
  Serious: Yes (Other)
  Sender: FDA-Public Use
  Company Number: US-BAYER-201027447NA

PATIENT
  Age: 71 Year
  Sex: Female

DRUGS (12)
  1. CIPROFLOXACIN HCL [Suspect]
     Indication: PRODUCT USED FOR UNKNOWN INDICATION
     Dosage: ONE TABLET TWICE DAILY WAS TAKEN
  2. ASPIRIN [Suspect]
     Indication: PRODUCT USED FOR UNKNOWN INDICATION
  3. ACETAMINOPHEN [Suspect]
     Indication: PRODUCT USED FOR UNKNOWN INDICATION
  4. COZAAR [Suspect]
     Indication: HYPERTENSION
     Dosage: TOTAL DAILY DOSE: 50 MG
     Route: 048
  5. RED YEAST [Suspect]
     Indication: PRODUCT USED FOR UNKNOWN INDICATION
  6. UNKNOWN CHOLESTEROL DRUG [Suspect]
     Indication: PRODUCT USED FOR UNKNOWN INDICATION
  7. NIASPAN [Suspect]
     Indication: PRODUCT USED FOR UNKNOWN INDICATION
  8. NIACIN [Suspect]
     Indication: PRODUCT USED FOR UNKNOWN INDICATION
  9. ZETIA [Concomitant]
  10. SYNTHROID [Concomitant]
  11. GLUCOPHAGE [Concomitant]
  12. DIFLUNISAL [Concomitant]
     Dosage: REPORTED NOT AS EFFECTIVE AS DOLOBID

REACTIONS (9)
  - ARTHRALGIA [None]
  - FEELING ABNORMAL [None]
  - HYPERHIDROSIS [None]
  - JOINT RANGE OF MOTION DECREASED [None]
  - JOINT STABILISATION [None]
  - LETHARGY [None]
  - MUSCLE SPASMS [None]
  - NAUSEA [None]
  - SOMNOLENCE [None]
